FAERS Safety Report 15466216 (Version 1)
Quarter: 2018Q4

REPORT INFORMATION
  Report Type: Spontaneous
  Country: US (occurrence: US)
  Receive Date: 20181004
  Receipt Date: 20181004
  Transmission Date: 20190204
  Serious: No
  Sender: FDA-Public Use
  Company Number: US-009507513-1809USA013633

PATIENT
  Sex: Female

DRUGS (2)
  1. NEXPLANON [Suspect]
     Active Substance: ETONOGESTREL
     Dosage: 1 DF, UNK
     Route: 059
     Dates: end: 20180921
  2. NEXPLANON [Suspect]
     Active Substance: ETONOGESTREL
     Dosage: 1 DF, UNK
     Route: 059
     Dates: start: 20180921

REACTIONS (10)
  - Implant site swelling [Not Recovered/Not Resolved]
  - Device deployment issue [Unknown]
  - Skin fissures [Unknown]
  - Implant site erythema [Not Recovered/Not Resolved]
  - Implant site hypersensitivity [Unknown]
  - Implant site infection [Not Recovered/Not Resolved]
  - Pyrexia [Not Recovered/Not Resolved]
  - Implant site abscess [Unknown]
  - Implant site mass [Not Recovered/Not Resolved]
  - Implant site discharge [Unknown]

NARRATIVE: CASE EVENT DATE: 201809
